FAERS Safety Report 8909282 (Version 2)
Quarter: 2012Q4

REPORT INFORMATION
  Report Type: Spontaneous
  Country: JP (occurrence: None)
  Receive Date: 20121107
  Receipt Date: 20121109
  Transmission Date: 20130627
  Serious: Yes (Hospitalization)
  Sender: FDA-Public Use
  Company Number: JP-010009

PATIENT
  Age: 87 Year
  Sex: Male

DRUGS (4)
  1. DEGARELIX [Suspect]
     Indication: PROSTATE CANCER
     Route: 058
  2. URIEF [Concomitant]
  3. STAYBLA [Concomitant]
  4. PROSEXOL [Concomitant]

REACTIONS (11)
  - Cardiac failure acute [None]
  - Dry mouth [None]
  - Feeling abnormal [None]
  - Bone pain [None]
  - Injection site erythema [None]
  - Injection site pain [None]
  - Ventricular extrasystoles [None]
  - Hypertension [None]
  - Lung disorder [None]
  - Blood creatine phosphokinase increased [None]
  - White blood cell count increased [None]
